FAERS Safety Report 8048459-5 (Version None)
Quarter: 2011Q4

REPORT INFORMATION
  Report Type: 
  Country: None (occurrence: None)
  Receive Date: 20111209
  Receipt Date: 20111019
  Transmission Date: 20120403
  Serious: No
  Sender: FDA-Public Use
  Company Number: 2011SP049881

PATIENT
  Age: 52 Year
  Sex: Female

DRUGS (4)
  1. NADOLOL [Concomitant]
  2. INTERFERON [Suspect]
     Indication: PRODUCT USED FOR UNKNOWN INDICATION
  3. VICTRELIS [Suspect]
     Indication: PRODUCT USED FOR UNKNOWN INDICATION
     Dosage: 800 MG;TID; PO
     Route: 048
     Dates: start: 20111007
  4. ZOLOFT [Concomitant]

REACTIONS (2)
  - HAEMORRHOIDS [None]
  - DIARRHOEA [None]
